FAERS Safety Report 18705762 (Version 1)
Quarter: 2021Q1

REPORT INFORMATION
  Report Type: Spontaneous
  Country: US (occurrence: US)
  Receive Date: 20210106
  Receipt Date: 20210106
  Transmission Date: 20210419
  Serious: Yes (Life-Threatening, Hospitalization, Congenital Anomaly, Other)
  Sender: FDA-Public Use
  Company Number: US-GLENMARK PHARMACEUTICALS-2020GMK051356

PATIENT
  Sex: Female
  Weight: 1.19 kg

DRUGS (5)
  1. ACETAMINOPHEN. [Suspect]
     Active Substance: ACETAMINOPHEN
     Indication: PRODUCT USED FOR UNKNOWN INDICATION
     Dosage: UNK
     Route: 064
  2. CITALOPRAM [Suspect]
     Active Substance: CITALOPRAM HYDROBROMIDE
     Indication: PRODUCT USED FOR UNKNOWN INDICATION
     Dosage: UNK
     Route: 064
  3. BETAMETHASONE DIPROPIONATE. [Suspect]
     Active Substance: BETAMETHASONE DIPROPIONATE
     Indication: PRODUCT USED FOR UNKNOWN INDICATION
     Dosage: UNK
     Route: 064
  4. ASPIRIN [ACETYLSALICYLIC ACID] [Suspect]
     Active Substance: ASPIRIN
     Indication: PRODUCT USED FOR UNKNOWN INDICATION
     Dosage: UNK
     Route: 064
  5. IBUPROFEN. [Suspect]
     Active Substance: IBUPROFEN
     Indication: PRODUCT USED FOR UNKNOWN INDICATION
     Dosage: UNK
     Route: 064

REACTIONS (15)
  - Tricuspid valve incompetence [Recovered/Resolved]
  - Pulmonary valve disease [Recovered/Resolved]
  - Diastolic dysfunction [Recovered/Resolved]
  - Sinus tachycardia [Recovered/Resolved]
  - Foetal exposure during pregnancy [Unknown]
  - Premature baby [Unknown]
  - Systolic dysfunction [Recovered/Resolved]
  - Cardiomegaly [Recovered/Resolved]
  - Pulmonary hypertension [Recovered/Resolved]
  - Respiratory failure [Recovered/Resolved]
  - Right ventricular hypertrophy [Recovered/Resolved]
  - Right ventricular dysfunction [Recovered/Resolved]
  - Ductus arteriosus premature closure [Recovered/Resolved]
  - Atrial septal defect [Recovered/Resolved]
  - Ventricular septal defect [Recovered/Resolved]
